FAERS Safety Report 25779174 (Version 2)
Quarter: 2025Q4

REPORT INFORMATION
  Report Type: Spontaneous
  Country: US (occurrence: US)
  Receive Date: 20250909
  Receipt Date: 20251007
  Transmission Date: 20260118
  Serious: No
  Sender: ROCHE
  Company Number: US-ROCHE-10000377469

PATIENT
  Age: 72 Year
  Sex: Female
  Weight: 81.65 kg

DRUGS (18)
  1. XOLAIR [Suspect]
     Active Substance: OMALIZUMAB
     Indication: Chronic spontaneous urticaria
     Dosage: XOLAIR SPP ADMINISTERED ON 19-AUG-2025,
     Route: 030
     Dates: start: 20250819
  2. XOLAIR [Suspect]
     Active Substance: OMALIZUMAB
     Indication: Angioedema
  3. XOLAIR [Suspect]
     Active Substance: OMALIZUMAB
     Indication: Urticaria
     Route: 058
     Dates: start: 202509
  4. XOLAIR [Suspect]
     Active Substance: OMALIZUMAB
     Route: 058
     Dates: start: 202503
  5. ALBUTEROL SULFATE [Concomitant]
     Active Substance: ALBUTEROL SULFATE
     Dosage: 108 (90 BASE) MCG/ACT AEROSOL SOLUTION INHALATION
  6. AmLODIPine Besy-Benazepril HCI [Concomitant]
     Dosage: 2 5-10 MG CAPSULE ORAL
  7. EPINEPHRINE [Concomitant]
     Active Substance: EPINEPHRINE
     Dosage: 0.3 MG/0.3ML 1 SOLUTION AUTO-INJECTOR ONCE AS NEEDED FOR REACTION INJECT INTRAMUSCULAR (QTY: 2), NOT
  8. EPIPEN [Concomitant]
     Active Substance: EPINEPHRINE
     Dosage: 0.3 MG/0.3ML SOLUTION AUTO-INJECTOR INJECTION
  9. FLONASE SENSIMIST ALLERGY RELIEF [Concomitant]
     Active Substance: FLUTICASONE FUROATE
     Dosage: 27.5 MCG/SPRAY SUSPENSION NASAL (QTY: 0)
  10. HYDROXYZINE [Concomitant]
     Active Substance: HYDROXYZINE HYDROCHLORIDE
     Dosage: 25 MG 1 TABLET QHS ORAL (QTY: 30.0)
  11. LORATADINE [Concomitant]
     Active Substance: LORATADINE
     Dosage: 10 MG 1 TABLET TABLET BID ORAL (QTY: 30)
  12. METHOCARBAMOL [Concomitant]
     Active Substance: METHOCARBAMOL
     Dosage: 500 MG TABLET ORAL
  13. NEFFY [Concomitant]
     Active Substance: EPINEPHRINE
     Dosage: 2 MG/0.1ML 1 SPRAY SOLUTION ONCE, REPEAT IN 5 MINUTES IF NEEDED ONE NOSTRIL (QTY: 2.0)
  14. PANTOPRAZOLE SODIUM [Concomitant]
     Active Substance: PANTOPRAZOLE SODIUM
     Dosage: 40 MG 1 TAB(S) TABLET DELAYED RELEASE ONCE A DAY ORAL (QTY: 30)
  15. ROSUVASTATIN CALCIUM [Concomitant]
     Active Substance: ROSUVASTATIN CALCIUM
     Dosage: 20 MG TABLET ORAL.
  16. SYSTANE ULTRA [Concomitant]
     Active Substance: POLYETHYLENE GLYCOL 400\PROPYLENE GLYCOL
     Dosage: SYSTANE ULTRA PF 0.4-0.3 % SOLUTION OPHTHALMIC
  17. VITAMIN D3 [Concomitant]
     Active Substance: CHOLECALCIFEROL
     Dosage: 10 MCG (400 UNIT) 2 TAB(S) TABLET ONCE A DAY CRAL (QTY: 60).
  18. WIXELA INHUB [Concomitant]
     Active Substance: FLUTICASONE PROPIONATE\SALMETEROL XINAFOATE
     Dosage: 250-50 MCG/ACT

REACTIONS (6)
  - Swelling face [Recovered/Resolved]
  - Rhinitis [Recovered/Resolved]
  - Dyspnoea exertional [Recovered/Resolved]
  - Urticaria [Recovered/Resolved]
  - Pruritus [Recovered/Resolved]
  - Off label use [Unknown]
